FAERS Safety Report 4635893-6 (Version None)
Quarter: 2005Q2

REPORT INFORMATION
  Report Type: 
  Country: None (occurrence: None)
  Receive Date: 20050415
  Receipt Date: 20050408
  Transmission Date: 20051028
  Serious: Yes (Other)
  Sender: FDA-Public Use
  Company Number: CA-GLAXOSMITHKLINE-A0553877A

PATIENT
  Age: 68 Year
  Sex: Female

DRUGS (7)
  1. AVANDIA [Suspect]
     Indication: DRUG USE FOR UNKNOWN INDICATION
     Dosage: 8MG PER DAY
  2. ASPIRIN [Concomitant]
  3. DIABETA [Concomitant]
  4. GLUCOPHAGE [Concomitant]
  5. INHIBACE PLUS [Concomitant]
  6. LIPIDIL [Concomitant]
  7. RESTORIL [Concomitant]

REACTIONS (2)
  - AFFECT LABILITY [None]
  - AGGRESSION [None]
